FAERS Safety Report 14392680 (Version 1)
Quarter: 2018Q1

REPORT INFORMATION
  Report Type: Spontaneous
  Country: US (occurrence: US)
  Receive Date: 20180112
  Receipt Date: 20180112
  Transmission Date: 20180509
  Serious: Yes (Hospitalization)
  Sender: FDA-Public Use
  Company Number: None

PATIENT
  Sex: Female

DRUGS (33)
  1. RISPERDAL [Concomitant]
     Active Substance: RISPERIDONE
  2. SINGULAIR [Concomitant]
     Active Substance: MONTELUKAST SODIUM
  3. BYSTOLIC [Concomitant]
     Active Substance: NEBIVOLOL HYDROCHLORIDE
  4. VITAMIN D3 [Concomitant]
     Active Substance: CHOLECALCIFEROL
  5. COMBIVENT [Concomitant]
     Active Substance: ALBUTEROL SULFATE\IPRATROPIUM BROMIDE
  6. PROBIOTIC [Concomitant]
     Active Substance: PROBIOTICS NOS
  7. NUCALA [Suspect]
     Active Substance: MEPOLIZUMAB
     Dosage: ?          OTHER FREQUENCY:Q4W;?
     Route: 058
     Dates: start: 20161219
  8. SYNTHROID [Concomitant]
     Active Substance: LEVOTHYROXINE SODIUM
  9. QVAR [Concomitant]
     Active Substance: BECLOMETHASONE DIPROPIONATE
  10. TUMS [Concomitant]
     Active Substance: CALCIUM CARBONATE
  11. AZELASTINE. [Concomitant]
     Active Substance: AZELASTINE HYDROCHLORIDE
  12. CALCIUM D3 [Concomitant]
     Active Substance: CALCIUM\CHOLECALCIFEROL
  13. IBUPROFEN. [Concomitant]
     Active Substance: IBUPROFEN
  14. MYRBETRIQ [Concomitant]
     Active Substance: MIRABEGRON
  15. ALPRAZOLAM. [Concomitant]
     Active Substance: ALPRAZOLAM
  16. VESICARE [Concomitant]
     Active Substance: SOLIFENACIN SUCCINATE
  17. VISINE [Concomitant]
     Active Substance: TETRAHYDROZOLINE HYDROCHLORIDE
  18. NICOTINAMIDE [Concomitant]
     Active Substance: NIACINAMIDE
  19. ANTI-DIARRHE [Concomitant]
  20. ANTI-HISTAMINE [Concomitant]
     Active Substance: ANTIHISTAMINES NOS
  21. CITALOPRAM [Concomitant]
     Active Substance: CITALOPRAM HYDROBROMIDE
  22. XANAX [Concomitant]
     Active Substance: ALPRAZOLAM
  23. MUCINEX [Concomitant]
     Active Substance: GUAIFENESIN
  24. MULTIVITAMIN [Concomitant]
     Active Substance: VITAMINS
  25. ROBITUSSIN (GUAIFENESIN) [Concomitant]
     Active Substance: GUAIFENESIN
  26. AYR ALLERGY [Concomitant]
  27. CARISOPRODOL. [Concomitant]
     Active Substance: CARISOPRODOL
  28. IPRATROPIUM [Concomitant]
     Active Substance: IPRATROPIUM
  29. BENZONATATE. [Concomitant]
     Active Substance: BENZONATATE
  30. VENTOLIN HFA [Concomitant]
     Active Substance: ALBUTEROL SULFATE
  31. DALIRESP [Concomitant]
     Active Substance: ROFLUMILAST
  32. IMODIUM [Concomitant]
     Active Substance: LOPERAMIDE HYDROCHLORIDE
  33. PREDNISONE. [Concomitant]
     Active Substance: PREDNISONE

REACTIONS (1)
  - Chronic obstructive pulmonary disease [None]
